FAERS Safety Report 12146970 (Version 2)
Quarter: 2016Q1

REPORT INFORMATION
  Report Type: Spontaneous
  Country: US (occurrence: US)
  Receive Date: 20160304
  Receipt Date: 20160308
  Transmission Date: 20160526
  Serious: Yes (Other)
  Sender: FDA-Public Use
  Company Number: US-009507513-1603USA001984

PATIENT
  Age: 55 Year
  Sex: Female

DRUGS (2)
  1. HEXADROL [Suspect]
     Active Substance: DEXAMETHASONE
     Dosage: UNK
     Route: 048
  2. FOSAMAX [Suspect]
     Active Substance: ALENDRONATE SODIUM
     Indication: OSTEOPOROSIS
     Dosage: UNK
     Route: 048

REACTIONS (1)
  - Atypical femur fracture [Unknown]
